FAERS Safety Report 20008244 (Version 4)
Quarter: 2021Q4

REPORT INFORMATION
  Report Type: Report from Study
  Country: UY (occurrence: UY)
  Receive Date: 20211028
  Receipt Date: 20211224
  Transmission Date: 20220303
  Serious: Yes (Death, Hospitalization, Other)
  Sender: FDA-Public Use
  Company Number: UY-TAKEDA-2021TUS066201

PATIENT
  Age: 26 Year
  Sex: Male
  Weight: 57 kg

DRUGS (2)
  1. IDURSULFASE [Suspect]
     Active Substance: IDURSULFASE
     Indication: Mucopolysaccharidosis II
     Dosage: 0.5 MICROGRAM/KILOGRAM
     Route: 042
     Dates: start: 2016
  2. IDURSULFASE [Suspect]
     Active Substance: IDURSULFASE
     Dosage: UNK
     Route: 042

REACTIONS (6)
  - Unevaluable event [Fatal]
  - Sepsis [Fatal]
  - Respiratory failure [Unknown]
  - Umbilical hernia [Unknown]
  - Pneumonia [Unknown]
  - Infection [Unknown]

NARRATIVE: CASE EVENT DATE: 20211015
